FAERS Safety Report 5655214-X (Version None)
Quarter: 2008Q1

REPORT INFORMATION
  Report Type: 
  Country: None (occurrence: None)
  Receive Date: 20080307
  Receipt Date: 20080225
  Transmission Date: 20080703
  Serious: Yes (Hospitalization)
  Sender: FDA-Public Use
  Company Number: US-AMGEN-QUU266051

PATIENT
  Sex: Female
  Weight: 51.8 kg

DRUGS (2)
  1. ENBREL [Suspect]
     Indication: RHEUMATOID ARTHRITIS
     Route: 058
     Dates: start: 20050308, end: 20060515
  2. METHOTREXATE [Concomitant]

REACTIONS (3)
  - CELLULITIS [None]
  - DIABETIC VASCULAR DISORDER [None]
  - OSTEOMYELITIS [None]
